FAERS Safety Report 9563139 (Version 2)
Quarter: 2013Q3

REPORT INFORMATION
  Report Type: Spontaneous
  Country: US (occurrence: US)
  Receive Date: 20130927
  Receipt Date: 20130927
  Transmission Date: 20140515
  Serious: No
  Sender: FDA-Public Use
  Company Number: US-BRISTOL-MYERS SQUIBB COMPANY-17348525

PATIENT
  Age: 75 Year
  Sex: Female

DRUGS (7)
  1. ONGLYZA TABS 5 MG [Suspect]
     Indication: DIABETES MELLITUS
     Dosage: PREVIOUSLY TOOK 2.5 MG
     Dates: start: 201110
  2. ARMOUR THYROID [Concomitant]
  3. METHYLIN [Concomitant]
  4. PROPRANOLOL [Concomitant]
  5. PRAVASTATIN SODIUM [Concomitant]
  6. ASPIRIN [Concomitant]
  7. DEXTRAN [Concomitant]

REACTIONS (5)
  - Urticaria [Unknown]
  - Bronchitis viral [Unknown]
  - Local swelling [Unknown]
  - Dry mouth [Unknown]
  - Dry eye [Unknown]
